FAERS Safety Report 16143081 (Version 1)
Quarter: 2019Q2

REPORT INFORMATION
  Report Type: Report from Study
  Country: GB (occurrence: GB)
  Receive Date: 20190401
  Receipt Date: 20190401
  Transmission Date: 20190711
  Serious: Yes (Hospitalization)
  Sender: FDA-Public Use
  Company Number: GB-JNJFOC-20190123031

PATIENT
  Sex: Female
  Weight: 51.6 kg

DRUGS (1)
  1. STELARA [Suspect]
     Active Substance: USTEKINUMAB
     Indication: CROHN^S DISEASE
     Route: 058
     Dates: start: 201710

REACTIONS (5)
  - Obstruction [Unknown]
  - Scar [Unknown]
  - Crohn^s disease [Recovered/Resolved]
  - Large intestinal stenosis [Unknown]
  - Anal abscess [Unknown]

NARRATIVE: CASE EVENT DATE: 2018
